FAERS Safety Report 7878904-7 (Version None)
Quarter: 2011Q4

REPORT INFORMATION
  Report Type: 
  Country: None (occurrence: None)
  Receive Date: 20111101
  Receipt Date: 20111021
  Transmission Date: 20120403
  Serious: Yes (Other)
  Sender: FDA-Public Use
  Company Number: US-CELGENEUS-163-21880-11102859

PATIENT
  Sex: Male
  Weight: 74 kg

DRUGS (9)
  1. CARBIDOPA / LEVODOPA SR [Concomitant]
     Dosage: 25/100 MG
     Route: 065
  2. HYDRALAZINE HCL [Concomitant]
     Dosage: 100 MILLIGRAM
     Route: 065
  3. RANITIDINE [Concomitant]
     Route: 065
  4. REVLIMID [Suspect]
     Indication: MYELODYSPLASTIC SYNDROME
     Dosage: 5 MILLIGRAM
     Route: 048
     Dates: start: 20110826, end: 20110915
  5. SIMVASTATIN [Concomitant]
     Dosage: 10 MILLIGRAM
     Route: 065
  6. ASPIRIN [Concomitant]
     Dosage: 81 MILLIGRAM
     Route: 065
  7. FOLIC ACID [Concomitant]
     Route: 065
  8. LISINOPRIL [Concomitant]
     Dosage: 10 MILLIGRAM
     Route: 065
  9. LORAZEPAM [Concomitant]
     Dosage: .5 MILLIGRAM
     Route: 065

REACTIONS (1)
  - PARKINSON'S DISEASE [None]
